FAERS Safety Report 17194757 (Version 1)
Quarter: 2019Q4

REPORT INFORMATION
  Report Type: Spontaneous
  Country: US (occurrence: US)
  Receive Date: 20191224
  Receipt Date: 20191224
  Transmission Date: 20200122
  Serious: Yes (Other)
  Sender: FDA-Public Use
  Company Number: US-DRREDDYS-USA/USA/19/0117572

PATIENT
  Sex: Male

DRUGS (1)
  1. RANITIDINE CAPSULES 150 MG [Suspect]
     Active Substance: RANITIDINE
     Indication: GASTROOESOPHAGEAL REFLUX DISEASE
     Dosage: AT NIGHT BED TIME
     Route: 048

REACTIONS (8)
  - Personality change [Unknown]
  - Haemorrhage [Unknown]
  - Weight decreased [Unknown]
  - Cerebrovascular accident [Unknown]
  - Anger [Unknown]
  - Pulmonary embolism [Unknown]
  - Schizophrenia [Unknown]
  - Diarrhoea [Unknown]
